FAERS Safety Report 5127850-0 (Version None)
Quarter: 2006Q4

REPORT INFORMATION
  Report Type: 
  Country: None (occurrence: None)
  Receive Date: 20061016
  Receipt Date: 20061002
  Transmission Date: 20070319
  Serious: Yes (Death)
  Sender: FDA-Public Use
  Company Number: US-JNJFOC-20060901001

PATIENT
  Sex: Female
  Weight: 56.7 kg

DRUGS (7)
  1. ORTHO TRI-CYCLEN LO [Suspect]
     Indication: CONTRACEPTION
  2. TYLENOL [Suspect]
     Indication: INFLUENZA
  3. AMPHETAMINES [Suspect]
     Indication: DRUG USE FOR UNKNOWN INDICATION
  4. PLAN B [Suspect]
  5. PLAN B [Suspect]
     Indication: ORAL CONTRACEPTION
  6. VITAMINES [Concomitant]
  7. VALTREX [Concomitant]

REACTIONS (18)
  - ARRHYTHMIA [None]
  - CHILLS [None]
  - DRUG LEVEL ABOVE THERAPEUTIC [None]
  - DRUG RESISTANCE [None]
  - DYSURIA [None]
  - HAEMATURIA [None]
  - HEADACHE [None]
  - HEPATIC CONGESTION [None]
  - INFLUENZA [None]
  - LIVER DISORDER [None]
  - MENORRHAGIA [None]
  - METRORRHAGIA [None]
  - PELVIC INFLAMMATORY DISEASE [None]
  - PELVIC PAIN [None]
  - PHARYNGOLARYNGEAL PAIN [None]
  - PULMONARY CONGESTION [None]
  - PYREXIA [None]
  - URINARY TRACT INFECTION [None]
